FAERS Safety Report 8572602-2 (Version None)
Quarter: 2012Q3

REPORT INFORMATION
  Report Type: 
  Country: None (occurrence: None)
  Receive Date: 20120806
  Receipt Date: 20120730
  Transmission Date: 20120928
  Serious: Yes (Life-Threatening, Hospitalization)
  Sender: FDA-Public Use
  Company Number: DE-ROCHE-1095559

PATIENT
  Sex: Female
  Weight: 62 kg

DRUGS (1)
  1. MIRCERA [Suspect]
     Indication: NEPHROGENIC ANAEMIA
     Dosage: LAST DOSE PRIOR TO SAE: 09/JAN/2012
     Route: 058
     Dates: start: 20101025

REACTIONS (2)
  - HYSTERECTOMY [None]
  - POSTOPERATIVE WOUND INFECTION [None]
